FAERS Safety Report 18292051 (Version 1)
Quarter: 2020Q3

REPORT INFORMATION
  Report Type: Spontaneous
  Country: US (occurrence: US)
  Receive Date: 20200922
  Receipt Date: 20200922
  Transmission Date: 20201103
  Serious: Yes (Other)
  Sender: FDA-Public Use
  Company Number: US-CISBIO-199400153

PATIENT
  Sex: Male

DRUGS (1)
  1. THALLOUS CHLORIDE TL 201 [Suspect]
     Active Substance: THALLOUS CHLORIDE TL-201
     Indication: SCAN MYOCARDIAL PERFUSION
     Dosage: 3MCI/1MCI
     Route: 051
     Dates: start: 19941006, end: 19941006

REACTIONS (1)
  - Pulse absent [Recovered/Resolved]

NARRATIVE: CASE EVENT DATE: 19941006
